FAERS Safety Report 5660893-7 (Version None)
Quarter: 2008Q1

REPORT INFORMATION
  Report Type: 
  Country: None (occurrence: None)
  Receive Date: 20080311
  Receipt Date: 20080304
  Transmission Date: 20080703
  Serious: Yes (Hospitalization)
  Sender: FDA-Public Use
  Company Number: JP-ABBOTT-08P-087-0440993-00

PATIENT
  Age: 38 Year
  Sex: Female

DRUGS (3)
  1. KLARICID [Suspect]
     Indication: PNEUMONIA
     Route: 048
     Dates: start: 20080225, end: 20080227
  2. LOXOPROFEN SODIUM HYDRATE [Concomitant]
     Indication: PNEUMONIA
     Dates: start: 20080225, end: 20080229
  3. AZITHROMYCIN HYDRATE [Concomitant]
     Indication: PNEUMONIA
     Route: 048
     Dates: start: 20080227, end: 20080229

REACTIONS (1)
  - INTERSTITIAL LUNG DISEASE [None]
